FAERS Safety Report 9956834 (Version 1)
Quarter: 2014Q1

REPORT INFORMATION
  Report Type: Report from Study
  Country: US (occurrence: US)
  Receive Date: 20140304
  Receipt Date: 20140304
  Transmission Date: 20141002
  Serious: No
  Sender: FDA-Public Use
  Company Number: US-ABBVIE-13P-163-1099240-00

PATIENT
  Age: 62 Year
  Sex: Female

DRUGS (13)
  1. HUMIRA [Suspect]
     Indication: RHEUMATOID ARTHRITIS
     Route: 058
     Dates: start: 20130511
  2. LANTUS SOLOS STAR INSULIN [Concomitant]
     Indication: DIABETES MELLITUS
     Dosage: 42 UNITS DAILY
     Route: 058
  3. NOVALOG FLEX PEN SLIDING SCALE [Concomitant]
     Indication: DIABETES MELLITUS
     Dosage: AFTER MEALS
     Route: 058
  4. METFORMIN [Concomitant]
     Indication: DIABETES MELLITUS
     Route: 048
  5. SYNTHROID [Concomitant]
     Indication: HYPOTHYROIDISM
     Dosage: 150 MCG DAILY
  6. SINGULAR [Concomitant]
     Indication: HYPERSENSITIVITY
     Dosage: 10 MG DAILY
     Route: 048
  7. AMITRIPTYLINE [Concomitant]
     Indication: INSOMNIA
     Dosage: AT BEDTIME
     Route: 048
  8. PRAMIPEXOLE [Concomitant]
     Indication: MUSCLE SPASMS
     Dosage: 0.25MG  1/2 TABLET DAILY
  9. PRAMIPEXOLE [Concomitant]
     Indication: MUSCLE SPASMS
  10. PLAQUENIL [Concomitant]
     Indication: RHEUMATOID ARTHRITIS
     Route: 048
  11. CO ENZYME Q10 [Concomitant]
     Indication: VITAMIN SUPPLEMENTATION
     Dosage: 600 MG
     Route: 048
  12. MULTIVITAMIN [Concomitant]
     Indication: VITAMIN SUPPLEMENTATION
     Dosage: DAILY
     Route: 048
  13. BABY ASPIRIN [Concomitant]
     Indication: PROPHYLAXIS
     Dosage: 81 MG DAILY

REACTIONS (2)
  - Muscle strain [Unknown]
  - Blood glucose decreased [Recovered/Resolved]
